FAERS Safety Report 17326177 (Version 5)
Quarter: 2020Q3

REPORT INFORMATION
  Report Type: Report from Study
  Country: US (occurrence: US)
  Receive Date: 20200127
  Receipt Date: 20200728
  Transmission Date: 20201102
  Serious: Yes (Death, Hospitalization, Other)
  Sender: FDA-Public Use
  Company Number: US-B.I. PHARMACEUTICALS,INC./RIDGEFIELD-2019-MR-102938

PATIENT
  Age: 82 Year
  Sex: Male

DRUGS (2)
  1. OFEV [Suspect]
     Active Substance: NINTEDANIB
     Indication: IDIOPATHIC PULMONARY FIBROSIS
     Dosage: TAKE 1 CAPSULE BY MOUTH TWICE A DAY 12 HOURS APART WITH FOOD
     Route: 048
     Dates: start: 20190820
  2. OFEV [Suspect]
     Active Substance: NINTEDANIB
     Indication: GASTROOESOPHAGEAL REFLUX DISEASE

REACTIONS (14)
  - Pulmonary function test decreased [Unknown]
  - Idiopathic pulmonary fibrosis [Unknown]
  - Acute respiratory failure [Unknown]
  - Pneumonia [Unknown]
  - Decreased appetite [Not Recovered/Not Resolved]
  - Acute kidney injury [Unknown]
  - Suspected COVID-19 [Unknown]
  - Fatigue [Not Recovered/Not Resolved]
  - Death [Fatal]
  - Cardiac failure acute [Unknown]
  - Dyspnoea exertional [Not Recovered/Not Resolved]
  - Asthma [Not Recovered/Not Resolved]
  - Lung neoplasm malignant [Unknown]
  - Metastases to gastrointestinal tract [Unknown]

NARRATIVE: CASE EVENT DATE: 20200717
